FAERS Safety Report 25615180 (Version 2)
Quarter: 2025Q3

REPORT INFORMATION
  Report Type: Report from Study
  Country: US (occurrence: US)
  Receive Date: 20250729
  Receipt Date: 20250814
  Transmission Date: 20251021
  Serious: Yes (Life-Threatening)
  Sender: CSL BEHRING
  Company Number: US-BEH-2025211641

PATIENT
  Age: 48 Year
  Sex: Female
  Weight: 105 kg

DRUGS (4)
  1. HIZENTRA [Suspect]
     Active Substance: HUMAN IMMUNOGLOBULIN G
     Indication: Immunodeficiency common variable
     Dosage: 8 G, QW
     Route: 058
     Dates: start: 20250621, end: 20250621
  2. HIZENTRA [Suspect]
     Active Substance: HUMAN IMMUNOGLOBULIN G
     Indication: Immunodeficiency common variable
     Dosage: 8 G, QW
     Route: 058
     Dates: start: 20250621, end: 20250621
  3. HIZENTRA [Suspect]
     Active Substance: HUMAN IMMUNOGLOBULIN G
     Dosage: 8 G, QW
     Route: 058
     Dates: start: 20250621, end: 20250621
  4. HIZENTRA [Suspect]
     Active Substance: HUMAN IMMUNOGLOBULIN G
     Dosage: 8 G, QW
     Route: 058
     Dates: start: 20250621, end: 20250621

REACTIONS (7)
  - Hypersensitivity [Recovered/Resolved]
  - Erythema [Recovered/Resolved]
  - Skin burning sensation [Recovered/Resolved]
  - Obstructive airways disorder [Recovered/Resolved]
  - Chest discomfort [Recovered/Resolved]
  - Dyspnoea [Recovered/Resolved]
  - Intentional device misuse [Recovered/Resolved]

NARRATIVE: CASE EVENT DATE: 20250621
